FAERS Safety Report 8947885 (Version 2)
Quarter: 2013Q1

REPORT INFORMATION
  Report Type: Spontaneous
  Country: US (occurrence: US)
  Receive Date: 20121204
  Receipt Date: 20130118
  Transmission Date: 20140127
  Serious: Yes (Other)
  Sender: FDA-Public Use
  Company Number: US-ABBOTT-12P-163-1007773-00

PATIENT
  Age: 55 Year
  Sex: Female

DRUGS (7)
  1. HUMIRA [Suspect]
     Indication: CROHN^S DISEASE
     Route: 058
  2. PREDNISONE [Concomitant]
     Indication: PRODUCT USED FOR UNKNOWN INDICATION
     Dosage: ON AND OFF
  3. PREDNISONE [Concomitant]
     Dates: start: 2011
  4. ANTIBIOTICS [Concomitant]
     Indication: PRODUCT USED FOR UNKNOWN INDICATION
     Dosage: ON AND OFF
  5. ANTIBIOTICS [Concomitant]
     Dates: start: 2011
  6. 6-MP [Concomitant]
     Indication: PRODUCT USED FOR UNKNOWN INDICATION
  7. ENTOCORT [Concomitant]
     Indication: PRODUCT USED FOR UNKNOWN INDICATION

REACTIONS (3)
  - Intestinal resection [Unknown]
  - Lupus-like syndrome [Unknown]
  - Adverse drug reaction [Unknown]
